FAERS Safety Report 4874372-8 (Version None)
Quarter: 2006Q1

REPORT INFORMATION
  Report Type: 
  Country: None (occurrence: None)
  Receive Date: 20060106
  Receipt Date: 20051228
  Transmission Date: 20060701
  Serious: Yes (Other)
  Sender: FDA-Public Use
  Company Number: PHRM2005FR03428

PATIENT
  Age: 50 Year
  Sex: Male

DRUGS (1)
  1. LEPONEX [Suspect]
     Route: 048
     Dates: start: 20001201

REACTIONS (3)
  - CARDIAC FAILURE [None]
  - CARDIAC FLUTTER [None]
  - CONDITION AGGRAVATED [None]
